FAERS Safety Report 10734076 (Version 2)
Quarter: 2015Q1

REPORT INFORMATION
  Report Type: Spontaneous
  Country: US (occurrence: US)
  Receive Date: 20150123
  Receipt Date: 20150129
  Transmission Date: 20150721
  Serious: Yes (Hospitalization, Other)
  Sender: FDA-Public Use
  Company Number: US-GLAXOSMITHKLINE-US2015GSK006967

PATIENT
  Age: 68 Year
  Sex: Male

DRUGS (13)
  1. ISOSORBIDE ER [Concomitant]
  2. METOPROLOL SUCCINATE ER [Concomitant]
     Active Substance: METOPROLOL SUCCINATE
  3. DULOXETINE HYDROCHLORIDE. [Concomitant]
     Active Substance: DULOXETINE HYDROCHLORIDE
  4. ADVAIR HFA [Suspect]
     Active Substance: FLUTICASONE PROPIONATE\SALMETEROL XINAFOATE
     Indication: PRODUCT USED FOR UNKNOWN INDICATION
     Dosage: UNK, U
  5. DIOVAN [Concomitant]
     Active Substance: VALSARTAN
  6. CLOPIDOGREL [Concomitant]
     Active Substance: CLOPIDOGREL BISULFATE
  7. TUDORZA PRESSAIR [Concomitant]
     Active Substance: ACLIDINIUM BROMIDE
  8. ALBUTEROL NEBULIZER [Concomitant]
     Active Substance: ALBUTEROL
  9. VENTOLIN HFA [Suspect]
     Active Substance: ALBUTEROL SULFATE
     Indication: CHRONIC OBSTRUCTIVE PULMONARY DISEASE
     Dosage: 2 DF, PRN
     Route: 048
  10. NITROSTAT [Concomitant]
     Active Substance: NITROGLYCERIN
  11. CARBIDOPA WITH LEVODOPA [Concomitant]
     Active Substance: CARBIDOPA\LEVODOPA
  12. ATORVASTATIN [Concomitant]
     Active Substance: ATORVASTATIN
  13. WARFARIN [Concomitant]
     Active Substance: WARFARIN

REACTIONS (5)
  - Stent placement [Unknown]
  - Pneumonia [Not Recovered/Not Resolved]
  - Myocardial infarction [Recovered/Resolved]
  - Pulmonary embolism [Unknown]
  - Medication error [Unknown]

NARRATIVE: CASE EVENT DATE: 201211
